FAERS Safety Report 5115175-9 (Version None)
Quarter: 2006Q3

REPORT INFORMATION
  Report Type: 
  Country: None (occurrence: None)
  Receive Date: 20060922
  Receipt Date: 20060912
  Transmission Date: 20061208
  Serious: Yes (Other)
  Sender: FDA-Public Use
  Company Number: 2006082364

PATIENT
  Age: 51 Year
  Sex: Female
  Weight: 84.8226 kg

DRUGS (2)
  1. GEODON [Suspect]
     Indication: BIPOLAR DISORDER
     Dosage: 180 MG
     Dates: start: 20060426, end: 20060601
  2. ULTRAM [Concomitant]

REACTIONS (2)
  - DRUG SCREEN POSITIVE [None]
  - LOSS OF CONSCIOUSNESS [None]
